FAERS Safety Report 4995188-8 (Version None)
Quarter: 2006Q2

REPORT INFORMATION
  Report Type: 
  Country: None (occurrence: None)
  Receive Date: 20060508
  Receipt Date: 20060323
  Transmission Date: 20061013
  Serious: Yes (Hospitalization)
  Sender: FDA-Public Use
  Company Number: US-MERCK-0603USA03960

PATIENT
  Age: 66 Year
  Sex: Male
  Weight: 142 kg

DRUGS (9)
  1. VIOXX [Suspect]
     Indication: OSTEOARTHRITIS
     Route: 048
     Dates: start: 20000101, end: 20040901
  2. VIOXX [Suspect]
     Route: 048
     Dates: start: 20000101, end: 20040901
  3. ASPIRIN [Concomitant]
     Route: 065
  4. MECLIZINE [Concomitant]
     Route: 065
  5. BISOPROLOL [Concomitant]
     Route: 065
  6. HYDROCHLOROTHIAZIDE [Concomitant]
     Route: 065
  7. VITAMIN E [Concomitant]
     Route: 065
  8. VITAMINS (UNSPECIFIED) [Concomitant]
     Route: 065
  9. POTASSIUM (UNSPECIFIED) [Concomitant]
     Route: 065

REACTIONS (11)
  - ANGINA UNSTABLE [None]
  - AORTIC STENOSIS [None]
  - CARDIAC VALVE SCLEROSIS [None]
  - CORONARY ARTERY DISEASE [None]
  - CORONARY ARTERY STENOSIS [None]
  - DILATATION ATRIAL [None]
  - ELECTROCARDIOGRAM ST SEGMENT DEPRESSION [None]
  - MYOCARDIAL ISCHAEMIA [None]
  - NECK PAIN [None]
  - PAIN IN EXTREMITY [None]
  - SLEEP APNOEA SYNDROME [None]
